FAERS Safety Report 9748340 (Version 2)
Quarter: 2013Q4

REPORT INFORMATION
  Report Type: Spontaneous
  Country: VE (occurrence: VE)
  Receive Date: 20131212
  Receipt Date: 20131212
  Transmission Date: 20140711
  Serious: Yes (Other)
  Sender: FDA-Public Use
  Company Number: PHHY2013VE136147

PATIENT
  Age: 62 Year
  Sex: Male

DRUGS (4)
  1. DIOVAN [Suspect]
     Indication: HYPERTENSION
     Dosage: 320 MG, DAILY
     Route: 048
     Dates: start: 2011
  2. DIOVAN [Suspect]
     Dosage: 2 DF, (160 MG)
  3. DIOVAN [Suspect]
     Dosage: 4 DF, (80 MG)
     Route: 048
  4. ADALAT [Concomitant]
     Dosage: 30 MG, DAILY
     Route: 048

REACTIONS (2)
  - Intervertebral disc injury [Unknown]
  - Hypertension [Recovered/Resolved]
